FAERS Safety Report 5409878-6 (Version None)
Quarter: 2007Q3

REPORT INFORMATION
  Report Type: 
  Country: None (occurrence: None)
  Receive Date: 20070809
  Receipt Date: 20070509
  Transmission Date: 20080115
  Serious: Yes (Life-Threatening, Hospitalization)
  Sender: FDA-Public Use
  Company Number: PHBS2007JP06079

PATIENT
  Age: 51 Year
  Sex: Female
  Weight: 90 kg

DRUGS (10)
  1. FAMOTIDINE [Concomitant]
     Route: 065
     Dates: start: 20050101, end: 20070319
  2. ASTOMIN [Concomitant]
     Route: 065
     Dates: start: 20061001, end: 20070319
  3. ALINAMIN [Concomitant]
     Route: 065
     Dates: start: 20061001, end: 20070319
  4. URSO 250 [Concomitant]
     Route: 065
     Dates: start: 20060219, end: 20070319
  5. ASPIRIN [Concomitant]
     Route: 065
     Dates: start: 20050101, end: 20070319
  6. MICARDIS [Concomitant]
     Route: 065
     Dates: start: 20050101, end: 20070319
  7. CALBLOCK [Concomitant]
     Route: 065
     Dates: start: 20050101, end: 20070319
  8. TRICHLORMETHIAZIDE [Concomitant]
     Route: 065
     Dates: start: 20060319, end: 20070319
  9. TEGRETOL [Suspect]
     Indication: DEPRESSION
     Dosage: 100 MG/DAY
     Route: 048
     Dates: start: 20070119, end: 20070306
  10. TEGRETOL [Suspect]
     Dosage: 200 MG/DAY
     Route: 048
     Dates: start: 20070307, end: 20070319

REACTIONS (14)
  - ALANINE AMINOTRANSFERASE INCREASED [None]
  - ARTHRALGIA [None]
  - ASPARTATE AMINOTRANSFERASE INCREASED [None]
  - BLOOD LACTATE DEHYDROGENASE INCREASED [None]
  - DIARRHOEA [None]
  - ENANTHEMA [None]
  - ERYTHEMA [None]
  - GAMMA-GLUTAMYLTRANSFERASE INCREASED [None]
  - MUCOSAL EROSION [None]
  - NEUTROPHIL COUNT INCREASED [None]
  - RASH [None]
  - STEVENS-JOHNSON SYNDROME [None]
  - URTICARIA [None]
  - WHITE BLOOD CELL COUNT INCREASED [None]
